FAERS Safety Report 20907241 (Version 1)
Quarter: 2022Q2

REPORT INFORMATION
  Report Type: Spontaneous
  Country: TW (occurrence: TW)
  Receive Date: 20220602
  Receipt Date: 20220602
  Transmission Date: 20220720
  Serious: Yes (Other)
  Sender: FDA-Public Use
  Company Number: TW-PFIZER INC-202200776653

PATIENT
  Age: 70 Year
  Sex: Female

DRUGS (1)
  1. CELEBREX [Suspect]
     Active Substance: CELECOXIB
     Indication: Pain
     Dosage: UNK UNK, 1X/DAY AFTER MEALS
     Dates: start: 20210809

REACTIONS (3)
  - Blood pressure decreased [Recovered/Resolved]
  - Drug ineffective [Unknown]
  - Abdominal discomfort [Unknown]
